FAERS Safety Report 15006649 (Version 2)
Quarter: 2018Q2

REPORT INFORMATION
  Report Type: Report from Study
  Country: US (occurrence: US)
  Receive Date: 20180613
  Receipt Date: 20180614
  Transmission Date: 20180711
  Serious: No
  Sender: FDA-Public Use
  Company Number: US-US WORLDMEDS, LLC-USW201710-001503

PATIENT
  Age: 80 Year
  Sex: Male

DRUGS (13)
  1. VITAMIN D [Concomitant]
     Active Substance: CHOLECALCIFEROL
  2. MAGNESIUM [Concomitant]
     Active Substance: MAGNESIUM
  3. ALLOPURINOL. [Concomitant]
     Active Substance: ALLOPURINOL
  4. FLUDROCORTISONE [Concomitant]
     Active Substance: FLUDROCORTISONE
  5. METHOTREXATE. [Concomitant]
     Active Substance: METHOTREXATE
  6. RYTARY [Concomitant]
     Active Substance: CARBIDOPA\LEVODOPA
  7. APOKYN [Suspect]
     Active Substance: APOMORPHINE HYDROCHLORIDE
     Indication: PARKINSON^S DISEASE
     Route: 058
     Dates: start: 20171019
  8. NEUPRO [Concomitant]
     Active Substance: ROTIGOTINE
  9. MELOXICAM. [Concomitant]
     Active Substance: MELOXICAM
  10. RESTASIS [Concomitant]
     Active Substance: CYCLOSPORINE
  11. FOLIC ACID. [Concomitant]
     Active Substance: FOLIC ACID
  12. HYDROXYCHLOROQUINE [Concomitant]
     Active Substance: HYDROXYCHLOROQUINE
  13. LINZESS [Concomitant]
     Active Substance: LINACLOTIDE

REACTIONS (5)
  - Rhinorrhoea [Recovered/Resolved]
  - Tremor [Recovered/Resolved]
  - Hyperhidrosis [Recovered/Resolved]
  - Lacrimation increased [Recovered/Resolved]
  - Speech disorder [Recovered/Resolved]

NARRATIVE: CASE EVENT DATE: 20171020
